FAERS Safety Report 13526348 (Version 1)
Quarter: 2017Q2

REPORT INFORMATION
  Report Type: Spontaneous
  Country: US (occurrence: US)
  Receive Date: 20170509
  Receipt Date: 20170509
  Transmission Date: 20170830
  Serious: Yes (Other)
  Sender: FDA-Public Use
  Company Number: US-SUN PHARMACEUTICAL INDUSTRIES LTD-2017US-140028

PATIENT
  Age: 71 Year
  Sex: Male

DRUGS (4)
  1. VALACICLOVIR [Suspect]
     Active Substance: VALACYCLOVIR HYDROCHLORIDE
     Indication: HERPES ZOSTER
  2. FOSCARNET [Concomitant]
     Active Substance: FOSCARNET
     Indication: HERPES ZOSTER
  3. VALACICLOVIR [Suspect]
     Active Substance: VALACYCLOVIR HYDROCHLORIDE
     Indication: NECROTISING RETINITIS
     Dosage: UNK
     Route: 048
  4. FOSCARNET [Concomitant]
     Active Substance: FOSCARNET
     Indication: NECROTISING RETINITIS
     Dosage: UNK
     Route: 050

REACTIONS (2)
  - Retinal detachment [Recovering/Resolving]
  - Ophthalmic herpes zoster [Unknown]
